FAERS Safety Report 5079031-7 (Version None)
Quarter: 2006Q3

REPORT INFORMATION
  Report Type: 
  Country: None (occurrence: None)
  Receive Date: 20060814
  Receipt Date: 20060803
  Transmission Date: 20061208
  Serious: Yes (Other)
  Sender: FDA-Public Use
  Company Number: US-BRISTOL-MYERS SQUIBB COMPANY-13466321

PATIENT
  Age: 56 Year
  Sex: Male

DRUGS (2)
  1. KENALOG-40 [Suspect]
     Indication: MACULAR OEDEMA
     Route: 031
     Dates: start: 20060526, end: 20060526
  2. KENALOG-40 [Suspect]
     Indication: DIABETIC RETINOPATHY
     Route: 031
     Dates: start: 20060526, end: 20060526

REACTIONS (1)
  - VISION BLURRED [None]
